FAERS Safety Report 15013119 (Version 2)
Quarter: 2018Q4

REPORT INFORMATION
  Report Type: Spontaneous
  Country: NL (occurrence: NL)
  Receive Date: 20180614
  Receipt Date: 20181003
  Transmission Date: 20190204
  Serious: Yes (Hospitalization, Other)
  Sender: FDA-Public Use
  Company Number: NL-SHIRE-NL201821534

PATIENT

DRUGS (2)
  1. COAGULATION FACTOR VIII(RECOMBINANT) [Suspect]
     Active Substance: ANTIHEMOPHILIC FACTOR, HUMAN RECOMBINANT
     Indication: FACTOR VIII DEFICIENCY
     Dosage: 1 UNK UNIT, EVERY WEEK
     Route: 065
  2. COAGULATION FACTOR VIII(RECOMBINANT) [Suspect]
     Active Substance: ANTIHEMOPHILIC FACTOR, HUMAN RECOMBINANT
     Dosage: 3 UNK UNITS, TIW
     Route: 065

REACTIONS (10)
  - Pyrexia [Unknown]
  - Haemarthrosis [Unknown]
  - Fall [Unknown]
  - Fatigue [Unknown]
  - Poor venous access [Unknown]
  - Listless [Unknown]
  - Factor VIII inhibition [Recovered/Resolved]
  - Administration site movement impairment [Unknown]
  - Contusion [Recovered/Resolved]
  - Product administration error [Recovered/Resolved]
